FAERS Safety Report 7376209-4 (Version None)
Quarter: 2011Q1

REPORT INFORMATION
  Report Type: 
  Country: None (occurrence: None)
  Receive Date: 20110325
  Receipt Date: 20110315
  Transmission Date: 20110831
  Serious: Yes (Death)
  Sender: FDA-Public Use
  Company Number: US-ACTELION-A-NJ2011-46353

PATIENT

DRUGS (1)
  1. TRACLEER [Suspect]
     Dosage: 125 MG, UNK
     Route: 048

REACTIONS (1)
  - DEATH [None]
